FAERS Safety Report 9090079 (Version 1)
Quarter: 2013Q1

REPORT INFORMATION
  Report Type: Report from Study
  Country: US (occurrence: US)
  Receive Date: 20130131
  Receipt Date: 20130131
  Transmission Date: 20140127
  Serious: No
  Sender: FDA-Public Use
  Company Number: US-ABBOTT-12P-163-1008888-00

PATIENT
  Age: 63 Year
  Sex: Female
  Weight: 73.09 kg

DRUGS (8)
  1. HUMIRA [Suspect]
     Indication: PSORIATIC ARTHROPATHY
     Dates: start: 20121013
  2. BENICAR [Concomitant]
     Indication: HYPERTENSION
  3. MEFORMIN [Concomitant]
     Indication: DIABETES MELLITUS
  4. TEMAZEPAM [Concomitant]
     Indication: INSOMNIA
  5. CLONAZEPAM [Concomitant]
     Indication: ANXIETY
  6. RANITIDINE [Concomitant]
     Indication: GASTROOESOPHAGEAL REFLUX DISEASE
  7. DILTIAZEM [Concomitant]
     Indication: HYPERTENSION
  8. LYRICA [Concomitant]
     Indication: DEPRESSION

REACTIONS (1)
  - Anaemia [Not Recovered/Not Resolved]
